FAERS Safety Report 15716888 (Version 1)
Quarter: 2018Q4

REPORT INFORMATION
  Report Type: Spontaneous
  Country: US (occurrence: US)
  Receive Date: 20181212
  Receipt Date: 20181212
  Transmission Date: 20190205
  Serious: Yes (Death)
  Sender: FDA-Public Use
  Company Number: None

PATIENT
  Age: 33 Year
  Sex: Male
  Weight: 72.57 kg

DRUGS (3)
  1. LYFT PREMIUM BALI KRATOM HERBAL SUPPLEMENT POWDER [Suspect]
     Active Substance: MITRAGYNINE\HERBALS
     Indication: AFFECTIVE DISORDER
  2. LYFT PREMIUM BALI KRATOM HERBAL SUPPLEMENT POWDER [Suspect]
     Active Substance: MITRAGYNINE\HERBALS
     Indication: DISTURBANCE IN ATTENTION
  3. LYFT PREMIUM BALI KRATOM HERBAL SUPPLEMENT POWDER [Suspect]
     Active Substance: MITRAGYNINE\HERBALS
     Indication: ASTHENIA
     Route: 048

REACTIONS (2)
  - Toxicity to various agents [None]
  - Cardiac death [None]

NARRATIVE: CASE EVENT DATE: 20181109
